FAERS Safety Report 5132445-9 (Version None)
Quarter: 2006Q4

REPORT INFORMATION
  Report Type: 
  Country: None (occurrence: None)
  Receive Date: 20061023
  Receipt Date: 20061010
  Transmission Date: 20070319
  Serious: Yes (Death, Life-Threatening, Hospitalization)
  Sender: FDA-Public Use
  Company Number: NL-AVENTIS-200620612GDDC

PATIENT
  Age: 67 Year
  Sex: Female

DRUGS (2)
  1. DOCETAXEL [Suspect]
     Indication: LEIOMYOSARCOMA
     Route: 042
     Dates: start: 20060120, end: 20060401
  2. GEMCITABINE [Concomitant]
     Indication: LEIOMYOSARCOMA
     Dates: start: 20060120, end: 20060401

REACTIONS (1)
  - PULMONARY TOXICITY [None]
